FAERS Safety Report 4885494-X (Version None)
Quarter: 2005Q4

REPORT INFORMATION
  Report Type: 
  Country: None (occurrence: None)
  Receive Date: 20051216
  Receipt Date: 20050224
  Transmission Date: 20060501
  Serious: Yes (Other)
  Sender: FDA-Public Use
  Company Number: 2005038738

PATIENT
  Age: 65 Year
  Sex: Female

DRUGS (4)
  1. METHYLPREDNISOLONE [Suspect]
     Indication: ARTHRITIS
     Dosage: 30 MG (4 MG, DAILY), ORAL; 25 MG (4 MG, DAILY), ORAL
     Route: 048
     Dates: start: 20050218, end: 20050218
  2. METHYLPREDNISOLONE [Suspect]
     Indication: SCIATICA
     Dosage: 30 MG (4 MG, DAILY), ORAL; 25 MG (4 MG, DAILY), ORAL
     Route: 048
     Dates: start: 20050218, end: 20050218
  3. METHYLPREDNISOLONE [Suspect]
     Indication: ARTHRITIS
     Dosage: 30 MG (4 MG, DAILY), ORAL; 25 MG (4 MG, DAILY), ORAL
     Route: 048
     Dates: start: 20050219, end: 20050219
  4. METHYLPREDNISOLONE [Suspect]
     Indication: SCIATICA
     Dosage: 30 MG (4 MG, DAILY), ORAL; 25 MG (4 MG, DAILY), ORAL
     Route: 048
     Dates: start: 20050219, end: 20050219

REACTIONS (1)
  - BLOOD PRESSURE INCREASED [None]
